FAERS Safety Report 18536217 (Version 7)
Quarter: 2022Q4

REPORT INFORMATION
  Report Type: Spontaneous
  Country: US (occurrence: US)
  Receive Date: 20201123
  Receipt Date: 20221114
  Transmission Date: 20230112
  Serious: No
  Sender: FDA-Public Use
  Company Number: US-PFIZER INC-2020458936

PATIENT
  Age: 68 Year
  Sex: Female
  Weight: 52.154 kg

DRUGS (3)
  1. EUCRISA [Suspect]
     Active Substance: CRISABOROLE
     Indication: Eczema
     Dosage: UNK, 2X/DAY (APPLY TO AFFECTED AREAS OF KNEES TWICE DAILY)
     Route: 061
  2. EUCRISA [Suspect]
     Active Substance: CRISABOROLE
     Indication: Dermatitis
     Dosage: 1 G, 2X/DAY
     Dates: start: 201911
  3. EUCRISA [Suspect]
     Active Substance: CRISABOROLE
     Dosage: APPLY TO ECZEMA LOCATED ON TRUNK TWICE A DAY, AS NEEDED
     Route: 061

REACTIONS (1)
  - Intentional product use issue [Unknown]
